FAERS Safety Report 25819991 (Version 2)
Quarter: 2025Q4

REPORT INFORMATION
  Report Type: Report from Study
  Country: EU (occurrence: EU)
  Receive Date: 20250918
  Receipt Date: 20251010
  Transmission Date: 20260117
  Serious: Yes (Hospitalization)
  Sender: ABBVIE
  Company Number: EU-ABBVIE-6358300

PATIENT
  Age: 77 Year
  Sex: Male

DRUGS (5)
  1. FOSCARBIDOPA\FOSLEVODOPA [Suspect]
     Active Substance: FOSCARBIDOPA\FOSLEVODOPA
     Indication: Parkinson^s disease
     Dosage: SD: 0.60 ML, CRN: 0.18 ML/H, CR: 0.23 ML/H, CRH: 0.25 ML/H, ED: 0.15 ML
     Route: 058
     Dates: start: 20250702, end: 20250703
  2. FOSCARBIDOPA\FOSLEVODOPA [Suspect]
     Active Substance: FOSCARBIDOPA\FOSLEVODOPA
     Dosage: SD: 0.60 ML, CRN: 0.18 ML/H, CR: 0.24ML/H, CRH: 0.26 ML/H, ED: 0.15 ML
     Route: 058
     Dates: start: 20250701, end: 20250702
  3. FOSCARBIDOPA\FOSLEVODOPA [Suspect]
     Active Substance: FOSCARBIDOPA\FOSLEVODOPA
     Dosage: SD: 0.60 ML, CRN: 0.20 ML/H, CR: 0.23 ML/H, CRH: 0.25 ML/H, ED: 0.15 ML?LAST ADMIN DATE: JUL 2025.
     Route: 058
     Dates: start: 20250703
  4. FOSCARBIDOPA\FOSLEVODOPA [Suspect]
     Active Substance: FOSCARBIDOPA\FOSLEVODOPA
     Dosage: SD: 0.60ML, CRN: 0.20 ML/H, CR: 0.30 ML/H, CRH: 0.33 ML/H, ED: 0.20 ML?FIRST ADMIN DATE: JUL 2025...
     Route: 058
  5. FOSCARBIDOPA\FOSLEVODOPA [Suspect]
     Active Substance: FOSCARBIDOPA\FOSLEVODOPA
     Dosage: SD: 0.60 ML, CRN: 0.26 ML/H, CR: 0.32 ML/H, CRH: 0.35 ML/H, ED: 0.20 ML ?FIRST ADMIN DATE: 2025
     Route: 058

REACTIONS (7)
  - Urinary tract infection staphylococcal [Not Recovered/Not Resolved]
  - Hypokinesia [Recovering/Resolving]
  - Hyperkinesia [Unknown]
  - Malaise [Not Recovered/Not Resolved]
  - Dizziness [Not Recovered/Not Resolved]
  - Infusion site inflammation [Not Recovered/Not Resolved]
  - Panic attack [Not Recovered/Not Resolved]

NARRATIVE: CASE EVENT DATE: 20250101
